FAERS Safety Report 8499560-3 (Version None)
Quarter: 2012Q3

REPORT INFORMATION
  Report Type: 
  Country: None (occurrence: None)
  Receive Date: 20120710
  Receipt Date: 20120628
  Transmission Date: 20120928
  Serious: Yes (Other)
  Sender: FDA-Public Use
  Company Number: US-BRISTOL-MYERS SQUIBB COMPANY-16723538

PATIENT
  Age: 50 Year
  Sex: Male

DRUGS (5)
  1. BARACLUDE [Suspect]
     Dosage: BARACLUDE FOR ABOUT 4 TO 5 YEARS
  2. EMEND [Concomitant]
  3. DECADRON [Concomitant]
  4. ALOXI [Concomitant]
  5. COMPAZINE [Concomitant]

REACTIONS (1)
  - THROAT CANCER [None]
